FAERS Safety Report 7337787-4 (Version None)
Quarter: 2011Q1

REPORT INFORMATION
  Report Type: 
  Country: None (occurrence: None)
  Receive Date: 20110308
  Receipt Date: 20110301
  Transmission Date: 20110831
  Serious: Yes (Other)
  Sender: FDA-Public Use
  Company Number: US-AMGEN-USASP2011012095

PATIENT
  Sex: Female

DRUGS (6)
  1. CORTICOSTEROIDS [Concomitant]
  2. ANTI-D                             /00016801/ [Concomitant]
  3. DANAZOL [Concomitant]
  4. RITUXIMAB [Concomitant]
  5. NPLATE [Suspect]
     Indication: IDIOPATHIC THROMBOCYTOPENIC PURPURA
     Dates: start: 20101025
  6. IMMUNOGLOBULINS [Concomitant]

REACTIONS (1)
  - SPLENOMEGALY [None]
